FAERS Safety Report 9321057 (Version 1)
Quarter: 2013Q2

REPORT INFORMATION
  Report Type: Spontaneous
  Country: US (occurrence: None)
  Receive Date: 20130530
  Receipt Date: 20130530
  Transmission Date: 20140414
  Serious: Yes (Death, Hospitalization)
  Sender: FDA-Public Use
  Company Number: None

PATIENT
  Age: 76 Year
  Sex: Male
  Weight: 89.1 kg

DRUGS (2)
  1. WARFARIN [Suspect]
     Dosage: 2 MG EVERY DAY PO
     Route: 048
     Dates: start: 20121119, end: 20130526
  2. CITALOPRAM [Suspect]
     Dosage: 20 MG EVERY DAY PO
     Route: 048
     Dates: start: 20121211, end: 20130526

REACTIONS (5)
  - Gastrointestinal haemorrhage [None]
  - Shock [None]
  - Cardiac arrest [None]
  - International normalised ratio increased [None]
  - Gastric haemorrhage [None]
